FAERS Safety Report 23524634 (Version 1)
Quarter: 2024Q1

REPORT INFORMATION
  Report Type: Spontaneous
  Country: CN (occurrence: CN)
  Receive Date: 20240215
  Receipt Date: 20240215
  Transmission Date: 20240409
  Serious: Yes (Hospitalization)
  Sender: FDA-Public Use
  Company Number: CN-SPC-000374

PATIENT
  Age: 64 Year
  Sex: Male

DRUGS (4)
  1. CLINDAMYCIN [Suspect]
     Active Substance: CLINDAMYCIN
     Indication: Empyema
     Route: 042
  2. LINEZOLID [Concomitant]
     Active Substance: LINEZOLID
     Indication: Empyema
     Route: 042
  3. CLINDAMYCIN [Suspect]
     Active Substance: CLINDAMYCIN
     Indication: Actinomyces test positive
     Route: 042
  4. LINEZOLID [Concomitant]
     Active Substance: LINEZOLID
     Indication: Actinomyces test positive
     Route: 042

REACTIONS (2)
  - Therapeutic product effect incomplete [Unknown]
  - Product use in unapproved indication [Unknown]
